FAERS Safety Report 9652033 (Version 3)
Quarter: 2013Q4

REPORT INFORMATION
  Report Type: Report from Study
  Country: JP (occurrence: JP)
  Receive Date: 20131029
  Receipt Date: 20131227
  Transmission Date: 20140711
  Serious: Yes (Life-Threatening)
  Sender: FDA-Public Use
  Company Number: JP-GILEAD-2013-0086257

PATIENT
  Age: 75 Year
  Sex: Male
  Weight: 48 kg

DRUGS (36)
  1. AMBRISENTAN [Suspect]
     Indication: PULMONARY ARTERIAL HYPERTENSION
     Dosage: 5MG PER DAY
     Route: 048
     Dates: start: 20120419, end: 20120426
  2. AMBRISENTAN [Suspect]
     Dosage: 5MG PER DAY
     Route: 048
     Dates: start: 20120612, end: 20120714
  3. ADCIRCA [Suspect]
     Indication: PULMONARY ARTERIAL HYPERTENSION
     Route: 048
     Dates: start: 20120510, end: 20120717
  4. CARELOAD [Concomitant]
     Indication: PULMONARY ARTERIAL HYPERTENSION
     Route: 048
     Dates: start: 20120522, end: 20120717
  5. MAGLAX [Concomitant]
     Route: 048
  6. MAGLAX [Concomitant]
     Route: 048
  7. MAGLAX [Concomitant]
     Route: 048
  8. FERROMIA [Concomitant]
     Route: 048
  9. FERROMIA [Concomitant]
     Route: 048
  10. FERROMIA [Concomitant]
     Route: 048
  11. FUROSEMIDE [Concomitant]
     Route: 048
  12. FUROSEMIDE [Concomitant]
     Route: 048
  13. FUROSEMIDE [Concomitant]
     Route: 048
  14. LENDORMIN DAINIPPO [Concomitant]
     Route: 048
  15. MEVALOTIN [Concomitant]
     Route: 048
  16. MEVALOTIN [Concomitant]
     Route: 048
  17. MEVALOTIN [Concomitant]
     Route: 048
  18. TAKEPRON [Concomitant]
     Route: 048
  19. TAKEPRON [Concomitant]
     Route: 048
  20. TAKEPRON [Concomitant]
     Route: 048
  21. PLAVIX [Concomitant]
     Route: 048
  22. PLAVIX [Concomitant]
     Route: 048
  23. PLAVIX [Concomitant]
     Route: 048
  24. RISPERDAL [Concomitant]
     Route: 048
  25. RISPERDAL [Concomitant]
     Route: 048
  26. RISPERDAL [Concomitant]
     Route: 048
  27. FEBURIC [Concomitant]
     Route: 048
  28. FEBURIC [Concomitant]
     Route: 048
  29. FEBURIC [Concomitant]
     Route: 048
  30. PURSENNID                          /00142207/ [Concomitant]
     Route: 048
  31. SAMSCA [Concomitant]
     Route: 048
  32. SAMSCA [Concomitant]
     Route: 048
  33. OXYGEN [Concomitant]
     Dosage: UNK
     Dates: start: 20120319
  34. XYZAL [Concomitant]
     Route: 048
  35. XYZAL [Concomitant]
     Route: 048
  36. XYZAL [Concomitant]
     Route: 048

REACTIONS (2)
  - Anaemia [Not Recovered/Not Resolved]
  - Blood pressure decreased [Recovered/Resolved]
